FAERS Safety Report 10163280 (Version 1)
Quarter: 2014Q2

REPORT INFORMATION
  Report Type: Report from Study
  Country: US (occurrence: US)
  Receive Date: 20140509
  Receipt Date: 20140509
  Transmission Date: 20141212
  Serious: Yes (Death, Life-Threatening, Hospitalization)
  Sender: FDA-Public Use
  Company Number: US-009507513-1405USA003493

PATIENT
  Age: 56 Year
  Sex: Male
  Weight: 71.2 kg

DRUGS (3)
  1. VORINOSTAT [Suspect]
     Indication: SQUAMOUS CELL CARCINOMA
     Dosage: 300 MG, M-W-F
     Route: 048
     Dates: start: 20140108, end: 20140312
  2. CISPLATIN [Suspect]
     Dosage: 172 MG, Q3 WEEKS X 3 DOSES
     Route: 065
     Dates: start: 20140115, end: 20140206
  3. CISPLATIN [Suspect]
     Dosage: 172 MG, Q3 WEEKS X 3 DOSES
     Route: 065
     Dates: end: 20140226

REACTIONS (4)
  - Sepsis [Fatal]
  - Myocardial infarction [Fatal]
  - Renal failure acute [Fatal]
  - Hypertension [Fatal]
